FAERS Safety Report 7345749-6 (Version None)
Quarter: 2011Q1

REPORT INFORMATION
  Report Type: 
  Country: None (occurrence: None)
  Receive Date: 20110308
  Receipt Date: 20110308
  Transmission Date: 20110831
  Serious: No
  Sender: FDA-Public Use
  Company Number: None

PATIENT
  Age: 41 Year
  Sex: Female
  Weight: 86.1834 kg

DRUGS (1)
  1. CYMBALTA [Suspect]
     Indication: DEPRESSION
     Dates: start: 20090701, end: 20090909

REACTIONS (17)
  - DYSSTASIA [None]
  - MOVEMENT DISORDER [None]
  - SPEECH DISORDER [None]
  - GAIT DISTURBANCE [None]
  - AMNESIA [None]
  - FEELING ABNORMAL [None]
  - APHASIA [None]
  - VERBIGERATION [None]
  - FEAR [None]
  - ELECTROENCEPHALOGRAM ABNORMAL [None]
  - BRAIN INJURY [None]
  - SUICIDAL IDEATION [None]
  - FRUSTRATION [None]
  - DYSPHEMIA [None]
  - PARAESTHESIA [None]
  - COGNITIVE DISORDER [None]
  - MENTAL IMPAIRMENT [None]
